FAERS Safety Report 7419622-9 (Version None)
Quarter: 2011Q1

REPORT INFORMATION
  Report Type: 
  Country: None (occurrence: None)
  Receive Date: 20110302
  Receipt Date: 20101109
  Transmission Date: 20110831
  Serious: No
  Sender: FDA-Public Use
  Company Number: 019898

PATIENT
  Sex: Male
  Weight: 99.8 kg

DRUGS (3)
  1. PROTONIX [Concomitant]
  2. VITAMIN B-12 [Concomitant]
  3. CIMZIA [Suspect]
     Indication: CROHN'S DISEASE
     Dosage: (400 MG 1X/MONTH SUBCUTANEOUS)
     Route: 058
     Dates: start: 20100701

REACTIONS (5)
  - PAIN [None]
  - HAEMATURIA [None]
  - RENAL PAIN [None]
  - FATIGUE [None]
  - NEPHROLITHIASIS [None]
